FAERS Safety Report 5711657-7 (Version None)
Quarter: 2008Q2

REPORT INFORMATION
  Report Type: 
  Country: None (occurrence: None)
  Receive Date: 20080416
  Receipt Date: 20080407
  Transmission Date: 20081010
  Serious: Yes (Other)
  Sender: FDA-Public Use
  Company Number: 2008SP006557

PATIENT
  Age: 56 Year
  Sex: Female
  Weight: 70 kg

DRUGS (6)
  1. PEG-INTRON [Suspect]
     Indication: HEPATITIS C
     Dosage: 120 MCG QW SC
     Route: 058
     Dates: start: 20050508, end: 20060103
  2. REBETOL [Suspect]
     Indication: HEPATITIS C
     Dosage: 1000 MG QD PO
     Route: 048
     Dates: start: 20050508, end: 20060109
  3. METOPROLOL TARTRATE [Concomitant]
  4. ESTRADIOL [Concomitant]
  5. RAMIPRIL [Concomitant]
  6. PANTOPRAZOLE SODIUM [Concomitant]

REACTIONS (1)
  - PARKINSONISM [None]
